FAERS Safety Report 5652623-X (Version None)
Quarter: 2008Q1

REPORT INFORMATION
  Report Type: 
  Country: None (occurrence: None)
  Receive Date: 20080306
  Receipt Date: 20080227
  Transmission Date: 20080703
  Serious: Yes (Disabling)
  Sender: FDA-Public Use
  Company Number: US-KINGPHARMUSA00001-K200800258

PATIENT

DRUGS (5)
  1. LEVOXYL [Suspect]
     Indication: HYPOTHYROIDISM
     Dosage: 50 MCG, QD
     Route: 048
     Dates: start: 20040101, end: 20060101
  2. LEVOXYL [Suspect]
     Dosage: 100 MCG, QD
     Route: 048
     Dates: start: 20060101, end: 20080113
  3. WELLBUTRIN [Concomitant]
     Dosage: 150 MG, BID
  4. DILANTIN [Concomitant]
     Indication: CONVULSION
     Dates: start: 19780101
  5. OTHER ANTI-ASTHMATICS, INHALANTS [Concomitant]
     Indication: ASTHMA
     Dosage: UNK, PRN

REACTIONS (13)
  - ARTHRALGIA [None]
  - DRUG PRESCRIBING ERROR [None]
  - ENERGY INCREASED [None]
  - FOOD CRAVING [None]
  - GENERAL PHYSICAL HEALTH DETERIORATION [None]
  - IMPAIRED DRIVING ABILITY [None]
  - IMPAIRED WORK ABILITY [None]
  - JOINT SWELLING [None]
  - MALAISE [None]
  - NERVOUSNESS [None]
  - OSTEOPENIA [None]
  - WALKING DISABILITY [None]
  - WEIGHT DECREASED [None]
